FAERS Safety Report 4856020-6 (Version None)
Quarter: 2005Q4

REPORT INFORMATION
  Report Type: 
  Country: None (occurrence: None)
  Receive Date: 20051216
  Receipt Date: 20051004
  Transmission Date: 20060501
  Serious: Yes (Other)
  Sender: FDA-Public Use
  Company Number: PHEH2005US11460

PATIENT
  Age: 47 Year
  Sex: Female

DRUGS (5)
  1. ZOMETA [Suspect]
     Indication: BREAST CANCER METASTATIC
     Dosage: UNK, UNK
  2. DILAUDID [Concomitant]
  3. TAXOL [Concomitant]
  4. HERCEPTIN [Concomitant]
  5. OMEPRAZOLE [Concomitant]

REACTIONS (8)
  - BONE DISORDER [None]
  - GINGIVAL SWELLING [None]
  - GINGIVITIS [None]
  - IMPAIRED HEALING [None]
  - OSTEOMYELITIS [None]
  - OSTEONECROSIS [None]
  - SOFT TISSUE INFECTION [None]
  - TOOTH EXTRACTION [None]
